FAERS Safety Report 5997297-3 (Version None)
Quarter: 2008Q4

REPORT INFORMATION
  Report Type: 
  Country: None (occurrence: None)
  Receive Date: 20081204
  Receipt Date: 20081118
  Transmission Date: 20090506
  Serious: Yes (Other)
  Sender: FDA-Public Use
  Company Number: B0548252A

PATIENT
  Age: 12 Year
  Sex: Female

DRUGS (14)
  1. TOPOTECAN HYDROCHLORIDE (FORMULATION UNKNOWN) (GENERIC) (TOPOTECAN) [Suspect]
     Indication: CHEMOTHERAPY
  2. MELPHALAN (FORMULATION UNKNOWN ) (GENERIC) (MELPHALAN) [Suspect]
  3. RADIOTHERAPY (FORMULATION UNKNOWN) (RADIOTHERAPY) [Suspect]
  4. CYCLOPHOSPHAMIDE [Suspect]
  5. VINCRISTINE [Suspect]
     Dosage: INTRATHECAL
     Route: 037
  6. FLUDARABINE PHOSPHATE [Suspect]
  7. THIOTEPA [Suspect]
  8. IFOSFAMIDE (FOMULATION UNKNOWN) (IFOSFAMIDE) [Suspect]
  9. ETOPOSIDE [Suspect]
  10. DOXORUBICIN HCL [Suspect]
  11. VINBLASTINE (FORMULATION UNKNOWN) (VINBLASTINE) [Suspect]
  12. INVESTIGAT.DRUG.UNSPEC (FORMULATION UNKNOWN) (INVESTIGAT.DRUG.UNSPEC.) [Suspect]
  13. IRINOTECAN (FORMULATION UNKNOWN) (IRINOTECAN) [Suspect]
  14. CARBOPLATIN [Suspect]

REACTIONS (11)
  - ANTI-GAD ANTIBODY POSITIVE [None]
  - ASTHENIA [None]
  - DRUG TOXICITY [None]
  - HYPOAESTHESIA [None]
  - IMMUNE SYSTEM DISORDER [None]
  - MALIGNANT NEOPLASM PROGRESSION [None]
  - NERVOUS SYSTEM DISORDER [None]
  - REFLEXES ABNORMAL [None]
  - SENSORY LOSS [None]
  - SPINAL DISORDER [None]
  - STEM CELL TRANSPLANT [None]
